FAERS Safety Report 19831897 (Version 2)
Quarter: 2021Q3

REPORT INFORMATION
  Report Type: Spontaneous
  Country: TR (occurrence: TR)
  Receive Date: 20210915
  Receipt Date: 20210917
  Transmission Date: 20211014
  Serious: Yes (Other)
  Sender: FDA-Public Use
  Company Number: TR-ROCHE-2909343

PATIENT
  Age: 55 Year
  Sex: Male

DRUGS (1)
  1. XOLAIR [Suspect]
     Active Substance: OMALIZUMAB
     Indication: IDIOPATHIC URTICARIA
     Dosage: 150 MG, 2 DOSES WITH 28 DAY PERIOD
     Route: 065

REACTIONS (2)
  - Malignant melanoma [Recovering/Resolving]
  - Metastasis [Recovering/Resolving]

NARRATIVE: CASE EVENT DATE: 20190624
